FAERS Safety Report 25237050 (Version 1)
Quarter: 2025Q2

REPORT INFORMATION
  Report Type: Spontaneous
  Country: GB (occurrence: GB)
  Receive Date: 20250425
  Receipt Date: 20250425
  Transmission Date: 20250716
  Serious: Yes (Other)
  Sender: ROCHE
  Company Number: None

PATIENT
  Age: 41 Year
  Sex: Male
  Weight: 95 kg

DRUGS (1)
  1. OCRELIZUMAB [Suspect]
     Active Substance: OCRELIZUMAB
     Indication: Product used for unknown indication
     Route: 042

REACTIONS (2)
  - Body tinea [Not Recovered/Not Resolved]
  - Hand dermatitis [Not Recovered/Not Resolved]
